FAERS Safety Report 12466245 (Version 1)
Quarter: 2016Q2

REPORT INFORMATION
  Report Type: Report from Study
  Country: FR (occurrence: FR)
  Receive Date: 20160614
  Receipt Date: 20160614
  Transmission Date: 20160815
  Serious: Yes (Disabling, Other)
  Sender: FDA-Public Use
  Company Number: FR-ABBVIE-16P-056-1649521-00

PATIENT
  Age: 65 Year
  Sex: Female
  Weight: 104 kg

DRUGS (3)
  1. VIEKIRAX [Suspect]
     Active Substance: OMBITASVIR\PARITAPREVIR\RITONAVIR
     Indication: HEPATITIS C
     Route: 048
     Dates: start: 20150409, end: 20150921
  2. RIBAVIRIN. [Suspect]
     Active Substance: RIBAVIRIN
     Indication: HEPATITIS C
     Route: 048
     Dates: start: 20150409, end: 20150921
  3. BIPRETERAX [Concomitant]
     Active Substance: INDAPAMIDE\PERINDOPRIL
     Indication: HYPERTENSION
     Dosage: 10MG/12/5MG
     Dates: start: 20150401, end: 20151026

REACTIONS (5)
  - Vertigo [Recovered/Resolved with Sequelae]
  - Microangiopathy [Unknown]
  - Tinnitus [Recovered/Resolved with Sequelae]
  - Deafness [Recovered/Resolved with Sequelae]
  - VIIIth nerve lesion [Recovered/Resolved with Sequelae]

NARRATIVE: CASE EVENT DATE: 201505
